FAERS Safety Report 7186737-2 (Version None)
Quarter: 2010Q4

REPORT INFORMATION
  Report Type: 
  Country: None (occurrence: None)
  Receive Date: 20101222
  Receipt Date: 20101217
  Transmission Date: 20110411
  Serious: Yes (Other)
  Sender: FDA-Public Use
  Company Number: JP-PFIZER INC-2010170842

PATIENT
  Age: 78 Year
  Sex: Female

DRUGS (2)
  1. SULPERAZON [Suspect]
  2. THEO-DUR [Suspect]

REACTIONS (1)
  - CONVULSION [None]
